FAERS Safety Report 5777219-0 (Version None)
Quarter: 2008Q2

REPORT INFORMATION
  Report Type: 
  Country: None (occurrence: None)
  Receive Date: 20080618
  Receipt Date: 20080611
  Transmission Date: 20081010
  Serious: Yes (Life-Threatening, Hospitalization, Other)
  Sender: FDA-Public Use
  Company Number: PHEH2008US00465

PATIENT
  Sex: Male
  Weight: 59.864 kg

DRUGS (6)
  1. ZOMETA [Suspect]
     Indication: PROSTATE CANCER METASTATIC
     Dosage: 4 MG, QMO
     Dates: start: 20030605, end: 20071220
  2. LIPITOR [Concomitant]
     Dates: start: 20070101
  3. CASODEX [Concomitant]
     Dosage: UNK
  4. LUPRON [Concomitant]
     Dosage: 7.5 MG, QMO
     Route: 030
  5. ARANESP [Concomitant]
     Dosage: 100 SQ WEEKLY PRN
     Route: 058
  6. CONTRAST MEDIA [Concomitant]
     Dosage: UNK
     Route: 042
     Dates: start: 20070316

REACTIONS (10)
  - BLADDER NEOPLASM [None]
  - BLOOD ALBUMIN DECREASED [None]
  - BLOOD CREATININE INCREASED [None]
  - BLOOD UREA INCREASED [None]
  - HAEMOGLOBIN DECREASED [None]
  - METABOLIC ACIDOSIS [None]
  - MYALGIA [None]
  - OEDEMA [None]
  - RENAL FAILURE [None]
  - URETERIC OBSTRUCTION [None]
